FAERS Safety Report 23232093 (Version 1)
Quarter: 2023Q4

REPORT INFORMATION
  Report Type: Spontaneous
  Country: US (occurrence: None)
  Receive Date: 20231124
  Receipt Date: 20231124
  Transmission Date: 20240110
  Serious: No
  Sender: FDA-Public Use
  Company Number: None

PATIENT
  Age: 70 Year
  Sex: Female
  Weight: 64.41 kg

DRUGS (1)
  1. NUCALA [Suspect]
     Active Substance: MEPOLIZUMAB
     Indication: Asthma
     Dosage: FREQUENCY : AS DIRECTED;?INJECT 100 MG SUB=BCUTANEOUS;Y IN THE ABDOMEN, THIGH, OR UPPER ARM EVERY 4
     Route: 058
     Dates: start: 202308

REACTIONS (2)
  - Arthralgia [None]
  - Pneumonia [None]
